FAERS Safety Report 4584831-3 (Version None)
Quarter: 2005Q1

REPORT INFORMATION
  Report Type: 
  Country: None (occurrence: None)
  Receive Date: 20050214
  Receipt Date: 20050204
  Transmission Date: 20050727
  Serious: Yes (Death, Hospitalization, Other)
  Sender: FDA-Public Use
  Company Number: 2004-12-0672

PATIENT
  Age: 82 Year
  Sex: Male

DRUGS (1)
  1. EULEXIN [Suspect]
     Indication: PROSTATE CANCER
     Dosage: ORAL
     Route: 048

REACTIONS (5)
  - ACUTE RESPIRATORY DISTRESS SYNDROME [None]
  - HIP FRACTURE [None]
  - PNEUMONIA [None]
  - POST PROCEDURAL COMPLICATION [None]
  - RESPIRATORY FAILURE [None]
